FAERS Safety Report 13744985 (Version 1)
Quarter: 2017Q3

REPORT INFORMATION
  Report Type: Spontaneous
  Country: US (occurrence: US)
  Receive Date: 20170711
  Receipt Date: 20170711
  Transmission Date: 20171127
  Serious: Yes (Other)
  Sender: FDA-Public Use
  Company Number: None

PATIENT
  Age: 7 Year
  Sex: Male
  Weight: 27.45 kg

DRUGS (1)
  1. POLYETHYLENE GLYCOL 3350 NF [Suspect]
     Active Substance: POLYETHYLENE GLYCOL 3350
     Indication: CONSTIPATION
     Dosage: OTHER STRENGTH:GM;QUANTITY:1 CAPFUL;?
     Route: 048

REACTIONS (4)
  - Abnormal behaviour [None]
  - Aggression [None]
  - Mood swings [None]
  - Anxiety [None]

NARRATIVE: CASE EVENT DATE: 20120203
